FAERS Safety Report 16693117 (Version 1)
Quarter: 2019Q4

REPORT INFORMATION
  Report Type: Spontaneous
  Country: US (occurrence: US)
  Receive Date: 20190811
  Receipt Date: 20190811
  Transmission Date: 20200122
  Serious: Yes (Other)
  Sender: FDA-Public Use
  Company Number: None

PATIENT
  Age: 71 Year
  Sex: Male
  Weight: 103.5 kg

DRUGS (25)
  1. LEVOFLOXACIN 500MG TABLETS GENERIC FOR LEVAQUIN 500MG TABLETS [Suspect]
     Active Substance: LEVOFLOXACIN
     Indication: URINARY TRACT INFECTION
     Dosage: ?          QUANTITY:1 TABLET(S);?           THERAPY ONGOING?: Y
     Route: 048
     Dates: end: 20190811
  2. IRBESARTAN. [Concomitant]
     Active Substance: IRBESARTAN
  3. LAMOTRIGINE. [Concomitant]
     Active Substance: LAMOTRIGINE
  4. VITAMIN C AND D [Concomitant]
  5. IRON [Concomitant]
     Active Substance: IRON
  6. TURMERIC/CURCUMIN [Concomitant]
  7. CONJUGATED LINOLEIC ACID [Concomitant]
     Active Substance: LINOLEIC ACID, CONJUGATED
  8. SAW PALMETTO [Concomitant]
     Active Substance: HERBALS\SAW PALMETTO
  9. LEVOFLOXACIN. [Concomitant]
     Active Substance: LEVOFLOXACIN
  10. CARVEDILOL. [Concomitant]
     Active Substance: CARVEDILOL
  11. DOXAZOSIN [Concomitant]
     Active Substance: DOXAZOSIN MESYLATE
  12. COLCHICINE. [Concomitant]
     Active Substance: COLCHICINE
  13. ESCITALOPRAM [Concomitant]
     Active Substance: ESCITALOPRAM OXALATE
  14. MULTIVITAMIN [Concomitant]
     Active Substance: VITAMINS
  15. ESSENTIAL MUNERALS [Concomitant]
  16. SIMVASTATIN. [Concomitant]
     Active Substance: SIMVASTATIN
  17. COQ 10 [Concomitant]
     Active Substance: UBIDECARENONE
  18. LEVOFLOXACIN 500MG TABLETS GENERIC FOR LEVAQUIN 500MG TABLETS [Suspect]
     Active Substance: LEVOFLOXACIN
     Indication: PROSTATE INFECTION
     Dosage: ?          QUANTITY:1 TABLET(S);?           THERAPY ONGOING?: Y
     Route: 048
     Dates: end: 20190811
  19. AMLODIPINE BESYLATE. [Concomitant]
     Active Substance: AMLODIPINE BESYLATE
  20. HERBAL BLOOD SUGAR SUPPORT [Concomitant]
  21. CLONAZEPAM. [Concomitant]
     Active Substance: CLONAZEPAM
  22. BIO-RUTIN COMPLEX [Concomitant]
  23. FLORA PROBIOTIC [Concomitant]
  24. ELEMENTAL IRON AS CARBONYL IRON [Concomitant]
  25. FLOIC ACID [Concomitant]

REACTIONS (3)
  - Rash papular [None]
  - Rash erythematous [None]
  - Heavy exposure to ultraviolet light [None]

NARRATIVE: CASE EVENT DATE: 20190809
